FAERS Safety Report 23350857 (Version 1)
Quarter: 2023Q4

REPORT INFORMATION
  Report Type: Spontaneous
  Country: None (occurrence: GB)
  Receive Date: 20231229
  Receipt Date: 20231229
  Transmission Date: 20240110
  Serious: Yes (Hospitalization, Other)
  Sender: FDA-Public Use
  Company Number: GB-B.Braun Medical Inc.-2149930

PATIENT
  Age: 46 Year
  Sex: Male

DRUGS (5)
  1. SODIUM CHLORIDE FOR IRRIGATION [Suspect]
     Active Substance: SODIUM CHLORIDE
     Indication: Catheter management
  2. APIXABAN [Concomitant]
     Active Substance: APIXABAN
  3. CARFILZOMIB [Concomitant]
     Active Substance: CARFILZOMIB
  4. DEXTROSE [Concomitant]
     Active Substance: DEXTROSE\DEXTROSE MONOHYDRATE
  5. WATER [Concomitant]
     Active Substance: WATER

REACTIONS (5)
  - Plasma cell myeloma [None]
  - Superficial vein thrombosis [None]
  - Injection site erythema [None]
  - Peripheral swelling [None]
  - Skin warm [None]
